FAERS Safety Report 18758643 (Version 1)
Quarter: 2021Q1

REPORT INFORMATION
  Report Type: Spontaneous
  Country: TW (occurrence: TW)
  Receive Date: 20210120
  Receipt Date: 20210120
  Transmission Date: 20210419
  Serious: Yes (Death, Other)
  Sender: FDA-Public Use
  Company Number: TW-SUN PHARMACEUTICAL INDUSTRIES LTD-2021R1-276176

PATIENT
  Age: 67 Year
  Sex: Male

DRUGS (3)
  1. BETAMETHASONE. [Suspect]
     Active Substance: BETAMETHASONE
     Indication: SPINAL VESSEL CONGENITAL ANOMALY
     Dosage: 4 MILLIGRAM,EVERY 12 H)
     Route: 065
  2. FAMOTIDINE. [Suspect]
     Active Substance: FAMOTIDINE
     Indication: SPINAL VESSEL CONGENITAL ANOMALY
     Dosage: 20 MILLIGRAM, EVERY 12 H
     Route: 065
  3. BETAMETHASONE. [Suspect]
     Active Substance: BETAMETHASONE
     Dosage: UNK (DOSE TAPERED)
     Route: 065

REACTIONS (2)
  - Sepsis [Fatal]
  - Peptic ulcer [Unknown]
